FAERS Safety Report 5745951-0 (Version None)
Quarter: 2008Q2

REPORT INFORMATION
  Report Type: 
  Country: None (occurrence: None)
  Receive Date: 20080520
  Receipt Date: 20080505
  Transmission Date: 20081010
  Serious: Yes (Hospitalization, Other)
  Sender: FDA-Public Use
  Company Number: 2008ST000110

PATIENT
  Age: 46 Year
  Sex: Male

DRUGS (1)
  1. ZEGERID [Suspect]

REACTIONS (9)
  - AGITATION [None]
  - AMNESIA [None]
  - CONFUSIONAL STATE [None]
  - DEHYDRATION [None]
  - DELIRIUM [None]
  - HYPERREFLEXIA [None]
  - HYPONATRAEMIC ENCEPHALOPATHY [None]
  - INAPPROPRIATE ANTIDIURETIC HORMONE SECRETION [None]
  - RHABDOMYOLYSIS [None]
